FAERS Safety Report 7231591-3 (Version None)
Quarter: 2011Q1

REPORT INFORMATION
  Report Type: 
  Country: None (occurrence: None)
  Receive Date: 20110118
  Receipt Date: 20110111
  Transmission Date: 20110831
  Serious: Yes (Hospitalization, Other)
  Sender: FDA-Public Use
  Company Number: US-ABBOTT-11P-163-0696530-00

PATIENT
  Sex: Female

DRUGS (8)
  1. STELARA [Suspect]
     Dates: start: 20100223
  2. STELARA [Suspect]
     Indication: PSORIASIS
     Route: 058
     Dates: start: 20100126
  3. HUMIRA [Suspect]
     Indication: PSORIASIS
  4. ENBREL [Suspect]
     Indication: ILL-DEFINED DISORDER
  5. PRILOSEC [Concomitant]
     Indication: PRODUCT USED FOR UNKNOWN INDICATION
  6. VIVELLE [Concomitant]
     Indication: PRODUCT USED FOR UNKNOWN INDICATION
  7. VOLTAREN [Concomitant]
     Indication: PRODUCT USED FOR UNKNOWN INDICATION
  8. LEXAPRO [Concomitant]
     Indication: PRODUCT USED FOR UNKNOWN INDICATION

REACTIONS (16)
  - CONFUSIONAL STATE [None]
  - GAIT DISTURBANCE [None]
  - WALKING AID USER [None]
  - VIITH NERVE PARALYSIS [None]
  - DEMYELINATION [None]
  - DEPRESSION [None]
  - ANXIETY [None]
  - BLINDNESS [None]
  - ASTHENIA [None]
  - SPEECH DISORDER [None]
  - DYSGRAPHIA [None]
  - ENCEPHALOPATHY [None]
  - VISUAL FIELD DEFECT [None]
  - POSTERIOR REVERSIBLE ENCEPHALOPATHY SYNDROME [None]
  - ACTIVITIES OF DAILY LIVING IMPAIRED [None]
  - DYSARTHRIA [None]
